FAERS Safety Report 8005070-X (Version None)
Quarter: 2011Q4

REPORT INFORMATION
  Report Type: 
  Country: None (occurrence: None)
  Receive Date: 20111223
  Receipt Date: 20111219
  Transmission Date: 20120403
  Serious: Yes (Hospitalization)
  Sender: FDA-Public Use
  Company Number: US-ROXANE LABORATORIES, INC.-2011-RO-01832RO

PATIENT
  Age: 73 Year
  Sex: Male
  Weight: 82 kg

DRUGS (3)
  1. VELCADE [Suspect]
     Indication: MULTIPLE MYELOMA
     Route: 042
     Dates: start: 20110418
  2. PREDNISONE [Suspect]
     Indication: MULTIPLE MYELOMA
     Route: 048
     Dates: start: 20110418
  3. MELPHALAN HYDROCHLORIDE [Suspect]
     Indication: MULTIPLE MYELOMA
     Route: 048
     Dates: start: 20110418

REACTIONS (11)
  - DYSPNOEA [None]
  - PYREXIA [None]
  - CHEST PAIN [None]
  - CHILLS [None]
  - ASTHENIA [None]
  - DYSGEUSIA [None]
  - INGUINAL HERNIA [None]
  - INTESTINAL OBSTRUCTION [None]
  - PNEUMONIA [None]
  - MALAISE [None]
  - BACTERIAL INFECTION [None]
